FAERS Safety Report 5928084-X (Version None)
Quarter: 2008Q4

REPORT INFORMATION
  Report Type: 
  Country: None (occurrence: None)
  Receive Date: 20081023
  Receipt Date: 20081013
  Transmission Date: 20090506
  Serious: Yes (Hospitalization)
  Sender: FDA-Public Use
  Company Number: B0541287A

PATIENT
  Age: 44 Year
  Sex: Female

DRUGS (5)
  1. ZOPHREN [Suspect]
     Indication: DRUG USE FOR UNKNOWN INDICATION
     Dosage: 3MG PER DAY
     Route: 042
     Dates: start: 20080826, end: 20080915
  2. BUSULFAN [Suspect]
     Indication: DRUG USE FOR UNKNOWN INDICATION
     Route: 042
     Dates: start: 20080827, end: 20080901
  3. THIOTEPA [Suspect]
     Indication: DRUG USE FOR UNKNOWN INDICATION
     Route: 042
     Dates: start: 20080827, end: 20080829
  4. TOPALGIC (FRANCE) [Suspect]
     Indication: DRUG USE FOR UNKNOWN INDICATION
     Route: 048
     Dates: start: 20080829, end: 20080905
  5. RIVOTRIL [Suspect]
     Indication: DRUG USE FOR UNKNOWN INDICATION
     Dosage: 1MG PER DAY
     Route: 042
     Dates: start: 20080827, end: 20080902

REACTIONS (5)
  - DERMATITIS BULLOUS [None]
  - GENERALISED ERYTHEMA [None]
  - ORAL DISORDER [None]
  - PRURITUS [None]
  - SKIN NECROSIS [None]
